FAERS Safety Report 14326739 (Version 1)
Quarter: 2017Q4

REPORT INFORMATION
  Report Type: Spontaneous
  Country: SI (occurrence: SI)
  Receive Date: 20171227
  Receipt Date: 20171227
  Transmission Date: 20180321
  Serious: Yes (Other)
  Sender: FDA-Public Use
  Company Number: SI-ROCHE-2042077

PATIENT
  Sex: Female

DRUGS (1)
  1. AVASTIN [Suspect]
     Active Substance: BEVACIZUMAB
     Indication: OVARIAN CANCER
     Dosage: MEDIAN DOSE WAS 1000MG
     Route: 042

REACTIONS (8)
  - Fistula [Unknown]
  - Haemorrhage [Unknown]
  - Blood pressure inadequately controlled [Unknown]
  - Proteinuria [Unknown]
  - Uveitis [Unknown]
  - Deep vein thrombosis [Unknown]
  - Arrhythmia [Unknown]
  - Pain [Unknown]
